FAERS Safety Report 7081851-4 (Version None)
Quarter: 2010Q4

REPORT INFORMATION
  Report Type: 
  Country: None (occurrence: None)
  Receive Date: 20101103
  Receipt Date: 20101020
  Transmission Date: 20110411
  Serious: Yes (Other)
  Sender: FDA-Public Use
  Company Number: GB-AMGEN-QUU442903

PATIENT

DRUGS (1)
  1. ENBREL [Suspect]
     Dosage: UNK UNK, UNK
     Dates: start: 20060101

REACTIONS (2)
  - DRUG EFFECT DECREASED [None]
  - RED BLOOD CELL SEDIMENTATION RATE INCREASED [None]
